FAERS Safety Report 6999164-5 (Version None)
Quarter: 2010Q3

REPORT INFORMATION
  Report Type: 
  Country: None (occurrence: None)
  Receive Date: 20100920
  Receipt Date: 20100610
  Transmission Date: 20110219
  Serious: No
  Sender: FDA-Public Use
  Company Number: US-ASTRAZENECA-2010SE27141

PATIENT
  Age: 1007 Month
  Sex: Male
  Weight: 56.7 kg

DRUGS (5)
  1. SEROQUEL XR [Suspect]
     Indication: DEPRESSION
     Route: 048
     Dates: start: 20100510, end: 20100501
  2. SEROQUEL XR [Suspect]
     Route: 048
     Dates: start: 20100501
  3. ATENOLOL [Concomitant]
     Indication: HYPERTENSION
     Route: 048
  4. TENORMIN [Concomitant]
     Route: 065
  5. NORVASC [Concomitant]
     Route: 065

REACTIONS (2)
  - DIZZINESS [None]
  - GENERALISED ANXIETY DISORDER [None]
